FAERS Safety Report 15153892 (Version 1)
Quarter: 2018Q3

REPORT INFORMATION
  Report Type: Spontaneous
  Country: US (occurrence: US)
  Receive Date: 20180717
  Receipt Date: 20180717
  Transmission Date: 20181010
  Serious: No
  Sender: FDA-Public Use
  Company Number: US-SA-2018SA181870

PATIENT
  Sex: Female

DRUGS (1)
  1. ARAVA [Suspect]
     Active Substance: LEFLUNOMIDE

REACTIONS (2)
  - Rheumatoid arthritis [Unknown]
  - Rheumatoid factor [Unknown]
